FAERS Safety Report 5029207-X (Version None)
Quarter: 2006Q2

REPORT INFORMATION
  Report Type: 
  Country: None (occurrence: None)
  Receive Date: 20060613
  Receipt Date: 20060531
  Transmission Date: 20061013
  Serious: Yes (Hospitalization)
  Sender: FDA-Public Use
  Company Number: 2006071157

PATIENT
  Age: 43 Year

DRUGS (2)
  1. PREDNISONE TAB [Suspect]
     Indication: RHEUMATOID ARTHRITIS
     Dosage: 5 MG (5 MG, 1 IN 1 D), ORAL
     Route: 048
  2. ENBREL [Suspect]
     Indication: RHEUMATOID ARTHRITIS
     Dosage: 50 MG (50 MG, 1 IN 1 WK), SUBCUTANEOUS
     Route: 058

REACTIONS (8)
  - DIVERTICULAR PERFORATION [None]
  - DIVERTICULITIS [None]
  - GENERAL PHYSICAL CONDITION ABNORMAL [None]
  - LEUKOCYTOSIS [None]
  - PERIDIVERTICULITIS [None]
  - PERITONITIS [None]
  - PYREXIA [None]
  - SEROSITIS [None]
